FAERS Safety Report 9923994 (Version 2)
Quarter: 2014Q1

REPORT INFORMATION
  Report Type: Report from Study
  Country: GR (occurrence: GR)
  Receive Date: 20140225
  Receipt Date: 20140225
  Transmission Date: 20141002
  Serious: Yes (Life-Threatening, Hospitalization)
  Sender: FDA-Public Use
  Company Number: GR-B.I. PHARMACEUTICALS,INC./RIDGEFIELD-2013-BI-42678BI

PATIENT
  Age: 72 Year
  Sex: Male
  Weight: 83 kg

DRUGS (9)
  1. VOLASERTIB [Suspect]
     Indication: ACUTE MYELOID LEUKAEMIA
     Dosage: FORMULATION: INJECTION
     Route: 042
     Dates: start: 20131213, end: 20131213
  2. ZURCAZOL [Concomitant]
     Indication: GASTRITIS PROPHYLAXIS
     Dosage: 80 MG
     Route: 048
     Dates: start: 20131213
  3. BEVOSTATIN [Concomitant]
     Indication: HYPERLIPIDAEMIA
     Dosage: 40 MG
     Route: 048
     Dates: start: 20131213
  4. STABILANOL [Concomitant]
     Indication: ANTIFUNGAL PROPHYLAXIS
     Dosage: 400 MG
     Route: 048
     Dates: start: 20131213, end: 20131220
  5. EUCREAS [Concomitant]
     Indication: TYPE 2 DIABETES MELLITUS
     Route: 048
     Dates: start: 20131213, end: 20131217
  6. GLUCOPHAGE [Concomitant]
     Indication: TYPE 2 DIABETES MELLITUS
     Route: 048
     Dates: start: 20131213, end: 20131217
  7. ARACYTIN [Concomitant]
     Indication: ACUTE MYELOID LEUKAEMIA
     Dosage: 40 MG
     Route: 058
     Dates: start: 20131213
  8. LANTUS [Concomitant]
     Indication: TYPE 2 DIABETES MELLITUS
     Dosage: FORMULATION IN INJECTION TOTAL DOSE 20 IU
     Route: 058
     Dates: start: 20131217
  9. MYCAMINE [Concomitant]
     Indication: ANTIFUNGAL PROPHYLAXIS
     Route: 042
     Dates: start: 20131220

REACTIONS (4)
  - Anaemia [Not Recovered/Not Resolved]
  - Thrombocytopenia [Recovered/Resolved]
  - Tumour lysis syndrome [Recovered/Resolved]
  - Lower respiratory tract infection [Not Recovered/Not Resolved]
